FAERS Safety Report 5736513-X (Version None)
Quarter: 2008Q2

REPORT INFORMATION
  Report Type: 
  Country: None (occurrence: None)
  Receive Date: 20080508
  Receipt Date: 20080423
  Transmission Date: 20081010
  Serious: Yes (Hospitalization, Other)
  Sender: FDA-Public Use
  Company Number: JPI-P-003468

PATIENT
  Age: 31 Year
  Sex: Female

DRUGS (21)
  1. XYREM [Suspect]
     Indication: DRUG USE FOR UNKNOWN INDICATION
     Dosage: ORAL; (GM, TAKES EITHER 4.5 GM X2 OR 3 GM X3/NIGHT), ORAL
     Route: 048
     Dates: start: 20070101
  2. THYROID TABLETS (THYROID THERAPY) (TABLETS) [Concomitant]
  3. AMEPHETAMINE MIXED SALTS (AMFETAMINE SULFATE) [Concomitant]
  4. BUPROPION HCL (BUPROPION HYDROCHLORIDE) [Concomitant]
  5. FLUOXETINE HCL (FLUOXETINE HYDROCHLORIDE) [Concomitant]
  6. FLUCONAZOLE [Concomitant]
  7. LAMOTRIGINE [Concomitant]
  8. TAMSULOSIN HYDROCHLORIDE (TAMSULOSIN HYDROCHLORIDE) [Concomitant]
  9. CLONAZEPAM [Concomitant]
  10. CIPROFLOXACIN [Concomitant]
  11. ONDANSETRON HYDROCHLORIDE [Concomitant]
  12. PROMETHAZINE (PROMETHAZINE) (SUPPOSITORY) [Concomitant]
  13. HYDROCODONE BITARTRATE AND ACETAMINOPHEN (VICODIN) [Concomitant]
  14. CHLORDIAZEPOXIDE AND CLIDINIUM (CHLORDIAZEPOXIDE W/CLIDINIUM) [Concomitant]
  15. METOCLOPRAMIDE (METOCLOPRAMIDE) [Concomitant]
  16. AZITHROMYCIN [Concomitant]
  17. TINIDAZOLE (TINIDAZOLE) [Concomitant]
  18. POLYETHYLENE GLYCOL (MACROGOL) [Concomitant]
  19. OMEPRAZOLE [Concomitant]
  20. DIPHENHYDRAMINE HCL [Concomitant]
  21. VANCOMYCIN [Concomitant]

REACTIONS (8)
  - AMNESIA [None]
  - CONFUSIONAL STATE [None]
  - CONVULSION [None]
  - FALL [None]
  - IMPAIRED GASTRIC EMPTYING [None]
  - NAUSEA [None]
  - ORTHOSTATIC INTOLERANCE [None]
  - PELVIC FRACTURE [None]
